FAERS Safety Report 23703756 (Version 1)
Quarter: 2024Q2

REPORT INFORMATION
  Report Type: Spontaneous
  Country: CN (occurrence: CN)
  Receive Date: 20240403
  Receipt Date: 20240403
  Transmission Date: 20240716
  Serious: Yes (Hospitalization)
  Sender: FDA-Public Use
  Company Number: CN-Merck Healthcare KGaA-2024016677

PATIENT
  Age: 58 Year
  Sex: Male
  Weight: 52 kg

DRUGS (4)
  1. ERBITUX [Suspect]
     Active Substance: CETUXIMAB
     Indication: Lip and/or oral cavity cancer
     Dosage: 100 MG, UNKNOWN (400MG/M2  )
     Route: 041
     Dates: start: 20240125, end: 20240127
  2. DOCETAXEL [Suspect]
     Active Substance: DOCETAXEL\DOCETAXEL ANHYDROUS
     Indication: Lip and/or oral cavity cancer
     Dosage: 20 MG, DAILY
     Route: 041
     Dates: start: 20240125, end: 20240127
  3. NEDAPLATIN [Suspect]
     Active Substance: NEDAPLATIN
     Indication: Lip and/or oral cavity cancer
     Dosage: 90 MG, UNKNOWN
     Route: 041
     Dates: start: 20240125, end: 20240127
  4. TORIPALIMAB [Suspect]
     Active Substance: TORIPALIMAB
     Indication: Lip and/or oral cavity cancer
     Dosage: 240 MG, DAILY
     Route: 041
     Dates: start: 20240126, end: 20240127

REACTIONS (1)
  - Myelosuppression [Recovering/Resolving]

NARRATIVE: CASE EVENT DATE: 20240205
